FAERS Safety Report 8478783-3 (Version None)
Quarter: 2012Q2

REPORT INFORMATION
  Report Type: 
  Country: None (occurrence: None)
  Receive Date: 20120629
  Receipt Date: 20120625
  Transmission Date: 20120825
  Serious: Yes (Hospitalization, Other)
  Sender: FDA-Public Use
  Company Number: AT-ROCHE-1035300

PATIENT
  Age: 42 Year
  Sex: Female
  Weight: 59 kg

DRUGS (4)
  1. VEMURAFENIB [Suspect]
     Dosage: LAST DOSE PRIOR TO SAE 12/MAR/2012
     Route: 048
     Dates: start: 20120215
  2. VEMURAFENIB [Suspect]
     Route: 048
     Dates: start: 20120127, end: 20120203
  3. VEMURAFENIB [Suspect]
     Route: 048
     Dates: start: 20120203, end: 20120215
  4. VEMURAFENIB [Suspect]
     Indication: METASTATIC MALIGNANT MELANOMA
     Route: 048
     Dates: start: 20120118, end: 20120127

REACTIONS (2)
  - OTITIS EXTERNA [None]
  - ARTHRALGIA [None]
